FAERS Safety Report 5011300-9 (Version None)
Quarter: 2006Q2

REPORT INFORMATION
  Report Type: 
  Country: None (occurrence: None)
  Receive Date: 20060524
  Receipt Date: 20060508
  Transmission Date: 20061013
  Serious: Yes (Life-Threatening, Hospitalization)
  Sender: FDA-Public Use
  Company Number: DSA_81603_2006

PATIENT
  Age: 54 Year
  Sex: Female
  Weight: 72.5755 kg

DRUGS (8)
  1. XYREM [Suspect]
     Indication: INSOMNIA
     Dosage: 4.5 G TWICE NIGHTLY PO
     Route: 048
     Dates: start: 20060310, end: 20060503
  2. ALCOHOL [Suspect]
     Dosage: 1 DF ONCE PO
     Route: 048
     Dates: start: 20060503, end: 20060503
  3. WELLBUTRIN [Concomitant]
  4. ATENOLOL [Concomitant]
  5. ZONISAMIDE [Concomitant]
  6. LITHIUM CARBONATE [Concomitant]
  7. ARIPIPRAZOLE [Concomitant]
  8. CLONAZEPAM [Concomitant]

REACTIONS (16)
  - ALCOHOL USE [None]
  - ANXIETY [None]
  - ASPIRATION [None]
  - CEREBELLAR ATROPHY [None]
  - CEREBRAL ATROPHY [None]
  - CHROMOSOME ABNORMALITY [None]
  - CONVULSION [None]
  - DRUG SCREEN POSITIVE [None]
  - FATIGUE [None]
  - MIGRAINE [None]
  - MYOCLONUS [None]
  - RESPIRATORY ARREST [None]
  - RESPIRATORY DEPRESSION [None]
  - UNRESPONSIVE TO VERBAL STIMULI [None]
  - URINE ANALYSIS ABNORMAL [None]
  - URINE KETONE BODY PRESENT [None]
